FAERS Safety Report 4319819-0 (Version None)
Quarter: 2004Q1

REPORT INFORMATION
  Report Type: 
  Country: None (occurrence: None)
  Receive Date: 20040316
  Receipt Date: 20040227
  Transmission Date: 20041129
  Serious: Yes (Hospitalization)
  Sender: FDA-Public Use
  Company Number: DSA_24053_2004

PATIENT
  Age: 72 Year
  Sex: Male

DRUGS (7)
  1. ENALAPRIL MALEATE AND HYDROCHLOROTHIAZIDE [Suspect]
     Indication: HYPERTENSION
     Dosage: 1 TAB QD PO
     Route: 048
     Dates: end: 20040127
  2. OMEPRAZOLE [Suspect]
     Indication: PROPHYLAXIS AGAINST GASTROINTESTINAL ULCER
     Dosage: 20 MG PO
     Route: 048
     Dates: end: 20040123
  3. ACETAMINOPHEN [Suspect]
     Dates: start: 20030701, end: 20040123
  4. PHLOROGLUCINOL + TRIMETHYLPHLOROGLUCIN [Concomitant]
  5. TAMSULOSIN HYDROCHLORIDE [Concomitant]
  6. TIXOCORTOL PIVALATE [Concomitant]
  7. TRIMEBUTINE MALEATE [Concomitant]

REACTIONS (5)
  - ASTHENIA [None]
  - DYSPNOEA [None]
  - GASTROINTESTINAL HAEMORRHAGE [None]
  - HAEMOLYTIC ANAEMIA [None]
  - MALAISE [None]
